FAERS Safety Report 5383946-X (Version None)
Quarter: 2007Q3

REPORT INFORMATION
  Report Type: 
  Country: None (occurrence: None)
  Receive Date: 20070711
  Receipt Date: 20070702
  Transmission Date: 20080115
  Serious: Yes (Hospitalization)
  Sender: FDA-Public Use
  Company Number: JP-ROCHE-493353

PATIENT
  Age: 7 Year
  Sex: Male

DRUGS (2)
  1. TAMIFLU [Suspect]
     Dosage: FORM: DRY SYRUP.
     Route: 048
     Dates: start: 20070411, end: 20070411
  2. TAMIFLU [Suspect]
     Dosage: FORM: DRY SYRUP.
     Route: 048
     Dates: start: 20070412, end: 20070412

REACTIONS (2)
  - ABNORMAL BEHAVIOUR [None]
  - VOMITING [None]
